FAERS Safety Report 9247009 (Version 1)
Quarter: 2013Q2

REPORT INFORMATION
  Report Type: Report from Study
  Country: HK (occurrence: HK)
  Receive Date: 20130423
  Receipt Date: 20130423
  Transmission Date: 20140414
  Serious: Yes (Hospitalization)
  Sender: FDA-Public Use
  Company Number: HK-MERCK-1304HKG009394

PATIENT
  Age: 62 Year
  Sex: Male
  Weight: 83.8 kg

DRUGS (13)
  1. PLACEBO [Suspect]
     Indication: TYPE 2 DIABETES MELLITUS
     Dosage: UNK
     Route: 048
     Dates: start: 20100505
  2. SIMVASTATIN 20 MG [Concomitant]
     Indication: HYPERLIPIDAEMIA
     Dosage: 20 MG DAILY DOSE
     Dates: start: 20080101
  3. METOPROLOL TARTRATE [Concomitant]
     Indication: HYPERTENSION
     Dosage: 200 MG DAILY DOSE
     Dates: start: 20080101
  4. METFORMIN [Concomitant]
     Indication: DIABETES MELLITUS
     Dosage: 2250 MG DAILY DOSE
     Dates: start: 20080101
  5. GLICLAZIDE [Concomitant]
     Indication: DIABETES MELLITUS
     Dosage: 40 MG DAILY DOSE
     Dates: start: 20080101
  6. ASPIRIN [Concomitant]
     Indication: CEREBROVASCULAR ACCIDENT
     Dosage: 80 MG DAILY DOSE
     Dates: start: 20080101
  7. ASPIRIN [Concomitant]
     Indication: ANGINA PECTORIS
  8. NIFEDIPINE [Concomitant]
     Indication: HYPERTENSION
     Dosage: 40 MG DAILY DOSE
     Dates: start: 20130305
  9. AUGMENTIN [Concomitant]
     Indication: ANTIBIOTIC THERAPY
     Dosage: 1125 MG DAILY DOSE
     Dates: start: 20130411
  10. FAMOTIDINE [Concomitant]
     Indication: PEPTIC ULCER
     Dosage: 40 MG DAILY DOSE
     Dates: start: 20100112
  11. FAMOTIDINE [Concomitant]
     Indication: GASTROOESOPHAGEAL REFLUX DISEASE
  12. PRAZOSIN [Concomitant]
     Indication: HYPERTENSION
     Dosage: 1 MG DAILY DOSE
     Dates: start: 20110419
  13. IRBESARTAN [Concomitant]
     Indication: HYPERTENSION
     Dosage: 300 MG DAILY DOSE
     Dates: start: 20121025

REACTIONS (1)
  - Subdural effusion [Recovered/Resolved]
